APPROVED DRUG PRODUCT: AZELEX
Active Ingredient: AZELAIC ACID
Strength: 20%
Dosage Form/Route: CREAM;TOPICAL
Application: N020428 | Product #001
Applicant: ALMIRALL LLC
Approved: Sep 13, 1995 | RLD: Yes | RS: Yes | Type: RX